FAERS Safety Report 6607368-6 (Version None)
Quarter: 2010Q1

REPORT INFORMATION
  Report Type: 
  Country: None (occurrence: None)
  Receive Date: 20100301
  Receipt Date: 20100222
  Transmission Date: 20100710
  Serious: Yes (Hospitalization)
  Sender: FDA-Public Use
  Company Number: US-BIOGENIDEC-2010BI005333

PATIENT
  Age: 55 Year
  Sex: Female

DRUGS (1)
  1. AVONEX [Suspect]
     Indication: MULTIPLE SCLEROSIS
     Route: 030
     Dates: start: 20090511

REACTIONS (4)
  - ABNORMAL BEHAVIOUR [None]
  - MOOD SWINGS [None]
  - PAIN IN EXTREMITY [None]
  - PSYCHOTIC DISORDER [None]
